FAERS Safety Report 8164220-5 (Version None)
Quarter: 2012Q1

REPORT INFORMATION
  Report Type: 
  Country: None (occurrence: None)
  Receive Date: 20120224
  Receipt Date: 20120214
  Transmission Date: 20120608
  Serious: Yes (Congenital Anomaly, Other)
  Sender: FDA-Public Use
  Company Number: US-ELI_LILLY_AND_COMPANY-US201202004798

PATIENT

DRUGS (4)
  1. HUMULIN N [Suspect]
     Indication: GESTATIONAL DIABETES
  2. HUMALOG [Suspect]
     Indication: GESTATIONAL DIABETES
     Dosage: UNK, UNKNOWN
     Route: 064
     Dates: start: 20110101
  3. HUMALOG [Suspect]
     Dosage: UNK, UNKNOWN
     Route: 064
     Dates: start: 20110101
  4. HUMULIN N [Suspect]

REACTIONS (2)
  - CONGENITAL CARDIOVASCULAR ANOMALY [None]
  - FOETAL EXPOSURE DURING PREGNANCY [None]
